FAERS Safety Report 5281605-5 (Version None)
Quarter: 2007Q1

REPORT INFORMATION
  Report Type: 
  Country: None (occurrence: None)
  Receive Date: 20070330
  Receipt Date: 20070323
  Transmission Date: 20070707
  Serious: Yes (Hospitalization)
  Sender: FDA-Public Use
  Company Number: 2007SE01646

PATIENT
  Age: 24601 Day
  Sex: Male
  Weight: 66 kg

DRUGS (3)
  1. BLOPRESS [Suspect]
     Indication: HYPERTENSION
     Route: 048
     Dates: start: 20070115, end: 20070131
  2. LEUPROLIDE ACETATE [Suspect]
     Indication: PROSTATE CANCER
     Route: 058
     Dates: start: 20070110, end: 20070110
  3. PROSTAL [Suspect]
     Indication: PROSTATE CANCER
     Route: 048
     Dates: start: 20061228, end: 20070207

REACTIONS (1)
  - LIVER DISORDER [None]
